FAERS Safety Report 7344995-5 (Version None)
Quarter: 2011Q1

REPORT INFORMATION
  Report Type: 
  Country: None (occurrence: None)
  Receive Date: 20110302
  Receipt Date: 20110113
  Transmission Date: 20110831
  Serious: No
  Sender: FDA-Public Use
  Company Number: 2011-00019

PATIENT
  Age: 55 Year
  Sex: Female
  Weight: 61.2356 kg

DRUGS (1)
  1. ZICAM EXTREME CONGESTIONAL RELIEF [Suspect]
     Dosage: 2 DOSES
     Dates: start: 20110112, end: 20110112

REACTIONS (2)
  - AGEUSIA [None]
  - ANOSMIA [None]
